FAERS Safety Report 7765963-5 (Version None)
Quarter: 2011Q3

REPORT INFORMATION
  Report Type: 
  Country: None (occurrence: None)
  Receive Date: 20110921
  Receipt Date: 20110124
  Transmission Date: 20111222
  Serious: Yes (Other)
  Sender: FDA-Public Use
  Company Number: PHHY2010JP75033

PATIENT
  Age: 68 Year
  Sex: Female

DRUGS (11)
  1. LASIX [Concomitant]
     Route: 048
     Dates: start: 20090407
  2. ADJUST-A [Concomitant]
     Dates: start: 20090406
  3. GLEEVEC [Suspect]
     Dosage: 200 MG DAILY
     Route: 048
     Dates: start: 20101115, end: 20101122
  4. GLEEVEC [Suspect]
     Indication: CHRONIC MYELOID LEUKAEMIA
     Dosage: 300 MG, DAILY
     Route: 048
     Dates: start: 20090207, end: 20101003
  5. ACEMAIL [Concomitant]
     Indication: HYPERTENSION
     Route: 048
     Dates: start: 20090406
  6. MYONAL [Concomitant]
     Dates: start: 20090204
  7. GLEEVEC [Suspect]
     Dosage: 300 MG, UNK
     Route: 048
     Dates: start: 20101025, end: 20101101
  8. MUCOSTA [Concomitant]
     Dates: start: 20090406
  9. LENDORMIN [Concomitant]
     Route: 048
     Dates: start: 20090326
  10. GLEEVEC [Suspect]
     Dosage: 200 MG DAILY
     Route: 048
     Dates: start: 20101018, end: 20101024
  11. OMEPRAZOLE [Concomitant]
     Route: 048
     Dates: start: 20090208

REACTIONS (3)
  - ELECTROCARDIOGRAM QT PROLONGED [None]
  - DECREASED APPETITE [None]
  - DIZZINESS [None]
